FAERS Safety Report 9490792 (Version 2)
Quarter: 2013Q4

REPORT INFORMATION
  Report Type: Spontaneous
  Country: US (occurrence: None)
  Receive Date: 20130826
  Receipt Date: 20131001
  Transmission Date: 20140711
  Serious: Yes (Other)
  Sender: FDA-Public Use
  Company Number: ADR-2013-01443

PATIENT
  Sex: Female

DRUGS (1)
  1. BACLOFEN INTRATHECAL [Suspect]
     Indication: POST LAMINECTOMY SYNDROME

REACTIONS (5)
  - Fall [None]
  - Nervousness [None]
  - Upper limb fracture [None]
  - Unevaluable event [None]
  - Gastric disorder [None]
